FAERS Safety Report 18996388 (Version 1)
Quarter: 2021Q1

REPORT INFORMATION
  Report Type: Other
  Country: CH (occurrence: CH)
  Receive Date: 20210311
  Receipt Date: 20210311
  Transmission Date: 20210420
  Serious: Yes (Life-Threatening, Hospitalization, Other)
  Sender: FDA-Public Use
  Company Number: CH-ASTELLAS-2021US008701

PATIENT
  Age: 66 Year
  Sex: Male

DRUGS (18)
  1. REGADENOSON [Suspect]
     Active Substance: REGADENOSON
     Indication: MAGNETIC RESONANCE IMAGING HEART
     Dosage: 400 ?G, SINGLE
     Route: 040
     Dates: start: 20210202, end: 20210202
  2. ELIQUIS [Concomitant]
     Active Substance: APIXABAN
     Indication: PRODUCT USED FOR UNKNOWN INDICATION
     Dosage: UNK UNK, UNKNOWN FREQ.
     Route: 065
  3. REGADENOSON [Suspect]
     Active Substance: REGADENOSON
     Indication: MAGNETIC RESONANCE IMAGING HEART
     Dosage: 400 ?G, SINGLE
     Route: 040
     Dates: start: 20210202, end: 20210202
  4. AMINOPHYLLINE. [Concomitant]
     Active Substance: AMINOPHYLLINE
     Indication: PRODUCT USED FOR UNKNOWN INDICATION
     Dosage: UNK UNK, UNKNOWN FREQ.
     Route: 065
     Dates: start: 20210202, end: 20210202
  5. METOPROLOL AXAPHARM [Concomitant]
     Indication: PRODUCT USED FOR UNKNOWN INDICATION
     Route: 065
  6. REMERON [Concomitant]
     Active Substance: MIRTAZAPINE
     Indication: PRODUCT USED FOR UNKNOWN INDICATION
     Dosage: UNK UNK, UNKNOWN FREQ.
     Route: 065
  7. REGADENOSON [Suspect]
     Active Substance: REGADENOSON
     Indication: MAGNETIC RESONANCE IMAGING HEART
     Dosage: 400 ?G, SINGLE
     Route: 040
     Dates: start: 20210202, end: 20210202
  8. TAVEGYL [Concomitant]
     Active Substance: CLEMASTINE FUMARATE
     Indication: PRODUCT USED FOR UNKNOWN INDICATION
     Dosage: UNK UNK, UNKNOWN FREQ.
     Route: 065
  9. REVLIMID [Concomitant]
     Active Substance: LENALIDOMIDE
     Indication: PRODUCT USED FOR UNKNOWN INDICATION
     Route: 065
  10. PANTOZOL [Concomitant]
     Active Substance: PANTOPRAZOLE SODIUM
     Indication: PRODUCT USED FOR UNKNOWN INDICATION
     Dosage: UNK UNK, UNKNOWN FREQ.
     Route: 065
  11. THEOPHYLLINUM ETHYLENDIAMINUM [Suspect]
     Active Substance: AMINOPHYLLINE
     Indication: MAGNETIC RESONANCE IMAGING HEART
     Route: 040
     Dates: start: 20210202, end: 20210202
  12. DIFLUCAN [Concomitant]
     Active Substance: FLUCONAZOLE
     Indication: PRODUCT USED FOR UNKNOWN INDICATION
     Dosage: UNK UNK, UNKNOWN FREQ.
     Route: 065
  13. VALTREX [Concomitant]
     Active Substance: VALACYCLOVIR HYDROCHLORIDE
     Indication: PRODUCT USED FOR UNKNOWN INDICATION
     Dosage: UNK UNK, UNKNOWN FREQ.
     Route: 065
  14. WELLVONE [Concomitant]
     Active Substance: ATOVAQUONE
     Indication: PRODUCT USED FOR UNKNOWN INDICATION
     Dosage: 150 MG/ML, UNKNOWN FREQ.
     Route: 065
  15. TOREM [TORASEMIDE] [Concomitant]
     Active Substance: TORSEMIDE
     Indication: PRODUCT USED FOR UNKNOWN INDICATION
     Route: 065
  16. GADOVIST [Suspect]
     Active Substance: GADOBUTROL
     Indication: MAGNETIC RESONANCE IMAGING HEART
     Dosage: UNK UNK, SINGLE
     Route: 040
     Dates: start: 20210202, end: 20210202
  17. ROSUVASTATIN HEMICALCIUM [Concomitant]
     Indication: PRODUCT USED FOR UNKNOWN INDICATION
     Dosage: UNK UNK, UNKNOWN FREQ.
     Route: 065
  18. REGADENOSON [Suspect]
     Active Substance: REGADENOSON
     Indication: MAGNETIC RESONANCE IMAGING HEART
     Dosage: 400 ?G, SINGLE
     Route: 040
     Dates: start: 20210202, end: 20210202

REACTIONS (1)
  - Drug reaction with eosinophilia and systemic symptoms [Recovering/Resolving]

NARRATIVE: CASE EVENT DATE: 20210202
